FAERS Safety Report 8793455 (Version 2)
Quarter: 2013Q1

REPORT INFORMATION
  Report Type: Spontaneous
  Country: BR (occurrence: BR)
  Receive Date: 20120918
  Receipt Date: 20130318
  Transmission Date: 20140127
  Serious: Yes (Other)
  Sender: FDA-Public Use
  Company Number: PHHY2012BR080678

PATIENT
  Age: 61 Year
  Sex: Male
  Weight: 95 kg

DRUGS (5)
  1. DIOVAN TRIPLE [Suspect]
     Indication: HYPERTENSION
     Dosage: 1 DF, (160/12,5/5 MG) 1 TABLET DAILY
     Dates: end: 20120913
  2. ATENOLOL [Concomitant]
     Indication: CORONARY ARTERY OCCLUSION
     Dosage: 1 DF, (25MG), DAILY
     Route: 048
  3. CLOPIDOGREL [Concomitant]
     Indication: ANTICOAGULANT THERAPY
     Dosage: 1 DF, (75MG). DAILY
     Route: 048
     Dates: start: 2012
  4. ATORVASTATIN [Concomitant]
     Indication: BLOOD CHOLESTEROL
     Dosage: 1 DF, UNK, DAILY
     Route: 048
     Dates: start: 201207
  5. SOMALGIN [Concomitant]
     Indication: ANTIPLATELET THERAPY
     Dosage: 1 DF, (100MG), DAILY
     Route: 048
     Dates: start: 201207

REACTIONS (1)
  - Infarction [Recovering/Resolving]
